FAERS Safety Report 9332077 (Version 2)
Quarter: 2013Q2

REPORT INFORMATION
  Report Type: Spontaneous
  Country: US (occurrence: US)
  Receive Date: 20130605
  Receipt Date: 20130605
  Transmission Date: 20140414
  Serious: Yes (Death, Other)
  Sender: FDA-Public Use
  Company Number: US-PFIZER INC-2013162144

PATIENT
  Age: 6 Year
  Sex: Female
  Weight: 44.9 kg

DRUGS (2)
  1. AZITHROMYCIN [Suspect]
     Indication: RESPIRATORY TRACT INFECTION
     Dosage: UNK
     Route: 048
  2. CODEINE PHOSPHATE GUAIFENESIN [Suspect]
     Indication: COUGH
     Dosage: 100 MG/10 MG IN 5ML AT 7:00, 15:00, AND 19:00 HOURS

REACTIONS (3)
  - Drug dispensing error [Fatal]
  - Toxicity to various agents [Fatal]
  - Brain oedema [Unknown]
